FAERS Safety Report 23398598 (Version 1)
Quarter: 2024Q1

REPORT INFORMATION
  Report Type: Spontaneous
  Country: US (occurrence: US)
  Receive Date: 20240112
  Receipt Date: 20240112
  Transmission Date: 20240410
  Serious: No
  Sender: FDA-Public Use
  Company Number: US-PERRIGO-23US000653

PATIENT
  Age: 83 Year
  Sex: Male
  Weight: 86.168 kg

DRUGS (1)
  1. IBUPROFEN [Suspect]
     Active Substance: IBUPROFEN
     Indication: Arthralgia
     Dosage: 200 MG, EVERY 6 HOURS
     Route: 048
     Dates: start: 20230115

REACTIONS (1)
  - Expired product administered [Unknown]

NARRATIVE: CASE EVENT DATE: 20230115
